FAERS Safety Report 14604168 (Version 1)
Quarter: 2018Q1

REPORT INFORMATION
  Report Type: Spontaneous
  Country: US (occurrence: US)
  Receive Date: 20180305
  Receipt Date: 20180305
  Transmission Date: 20180509
  Serious: Yes (Hospitalization, Other)
  Sender: FDA-Public Use
  Company Number: None

PATIENT
  Age: 62 Year
  Sex: Female
  Weight: 94.5 kg

DRUGS (10)
  1. BIOTIN [Concomitant]
     Active Substance: BIOTIN
  2. DICLOFENAC [Suspect]
     Active Substance: DICLOFENAC
     Indication: ARTHRITIS
     Dosage: ?          QUANTITY:1 TABLET(S);?
     Route: 048
     Dates: end: 20171201
  3. COLACE [Concomitant]
     Active Substance: DOCUSATE SODIUM
  4. TOPROL XL [Concomitant]
     Active Substance: METOPROLOL SUCCINATE
  5. NEUROTIN [Concomitant]
     Active Substance: GABAPENTIN
  6. MS CONTIN [Concomitant]
     Active Substance: MORPHINE SULFATE
  7. PAMALOR [Concomitant]
  8. PAXIL [Concomitant]
     Active Substance: PAROXETINE HYDROCHLORIDE
  9. ICAPS [Concomitant]
     Active Substance: MINERALS\VITAMINS
  10. CALCIUM [Concomitant]
     Active Substance: CALCIUM

REACTIONS (2)
  - Dysstasia [None]
  - Feeling abnormal [None]

NARRATIVE: CASE EVENT DATE: 20171202
